FAERS Safety Report 14846288 (Version 2)
Quarter: 2018Q2

REPORT INFORMATION
  Report Type: Spontaneous
  Country: US (occurrence: US)
  Receive Date: 20180504
  Receipt Date: 20180508
  Transmission Date: 20180711
  Serious: No
  Sender: FDA-Public Use
  Company Number: US-BIOGEN-2018BI00565498

PATIENT
  Sex: Female

DRUGS (2)
  1. TYSABRI [Suspect]
     Active Substance: NATALIZUMAB
     Route: 065
     Dates: start: 20161123
  2. TYSABRI [Suspect]
     Active Substance: NATALIZUMAB
     Indication: MULTIPLE SCLEROSIS
     Route: 065
     Dates: start: 20110930, end: 20120323

REACTIONS (6)
  - Multiple sclerosis [Unknown]
  - Progressive multiple sclerosis [Unknown]
  - Injection site pain [Unknown]
  - Musculoskeletal disorder [Unknown]
  - Multiple sclerosis relapse [Unknown]
  - Injection site erythema [Unknown]
